FAERS Safety Report 18372318 (Version 2)
Quarter: 2021Q2

REPORT INFORMATION
  Report Type: Report from Study
  Country: CL (occurrence: CL)
  Receive Date: 20201012
  Receipt Date: 20210413
  Transmission Date: 20210717
  Serious: Yes (Other)
  Sender: FDA-Public Use
  Company Number: NVSC2020CL271763

PATIENT
  Age: 6 Year
  Sex: Female
  Weight: 13 kg

DRUGS (3)
  1. OMNITROPE [Suspect]
     Active Substance: SOMATROPIN
     Indication: SHORT STATURE
     Dosage: UNK UNK, QD (UNDER THE SKIN VIA INJECTION)
     Route: 058
     Dates: start: 20180104, end: 20200605
  2. EUTIROX [Concomitant]
     Active Substance: LEVOTHYROXINE SODIUM
     Indication: PRODUCT USED FOR UNKNOWN INDICATION
     Dosage: 12.5 MG, QD
     Route: 048
  3. OMNITROPE [Suspect]
     Active Substance: SOMATROPIN
     Dosage: 0.6 MG
     Route: 065

REACTIONS (2)
  - Osteomyelitis [Unknown]
  - Osteomyelitis [Recovered/Resolved]

NARRATIVE: CASE EVENT DATE: 20200605
